FAERS Safety Report 7624660-7 (Version None)
Quarter: 2011Q3

REPORT INFORMATION
  Report Type: 
  Country: None (occurrence: None)
  Receive Date: 20110720
  Receipt Date: 20110711
  Transmission Date: 20111222
  Serious: Yes (Death, Other)
  Sender: FDA-Public Use
  Company Number: NO-NOVOPROD-331470

PATIENT
  Age: 58 Year
  Sex: Female

DRUGS (8)
  1. INSULATARD [Suspect]
     Indication: TYPE 2 DIABETES MELLITUS
     Dosage: 80 IE, QD (35+0+45)
  2. SIMVASTATIN [Suspect]
     Dosage: 20 MG, UNK
  3. ASPIRIN [Suspect]
  4. AMITRIPTYLINE HCL [Suspect]
     Dosage: 25 MG, 2X PER DAY
  5. METFORMIN HCL [Suspect]
  6. CITALOPRAM HYDROBROMIDE [Suspect]
  7. BENDROFLUMETHIAZIDE [Suspect]
  8. NOVORAPID [Suspect]
     Indication: TYPE 2 DIABETES MELLITUS
     Dosage: 2 IE, QD (2-4 IE WHEN EATING)

REACTIONS (3)
  - MULTI-ORGAN FAILURE [None]
  - DISSEMINATED INTRAVASCULAR COAGULATION [None]
  - SEROTONIN SYNDROME [None]
